FAERS Safety Report 5942851-8 (Version None)
Quarter: 2008Q4

REPORT INFORMATION
  Report Type: 
  Country: None (occurrence: None)
  Receive Date: 20081106
  Receipt Date: 20081028
  Transmission Date: 20090506
  Serious: Yes (Hospitalization, Other)
  Sender: FDA-Public Use
  Company Number: US-ROCHE-545022

PATIENT
  Sex: Female
  Weight: 53.5 kg

DRUGS (3)
  1. ACCUTANE [Suspect]
     Indication: ACNE
     Route: 065
     Dates: start: 19940131, end: 19950209
  2. ACCUTANE [Suspect]
     Route: 065
     Dates: start: 19951103, end: 19960702
  3. CELLCEPT [Suspect]
     Route: 048
     Dates: start: 19980601, end: 19990801

REACTIONS (49)
  - ACNE [None]
  - ANAEMIA [None]
  - ANXIETY [None]
  - ATELECTASIS [None]
  - BLOOD CHOLESTEROL INCREASED [None]
  - BLOOD TRIGLYCERIDES INCREASED [None]
  - CARDIAC TAMPONADE [None]
  - CEREBROVASCULAR ACCIDENT [None]
  - CHOLELITHIASIS [None]
  - CONVULSION [None]
  - DIARRHOEA [None]
  - DRUG INTOLERANCE [None]
  - GASTRITIS [None]
  - GINGIVAL HYPERPLASIA [None]
  - GLOMERULONEPHRITIS [None]
  - HIRSUTISM [None]
  - HYPERTENSION [None]
  - HYPOTENSION [None]
  - ILEITIS [None]
  - INFLAMMATORY BOWEL DISEASE [None]
  - LIVER FUNCTION TEST ABNORMAL [None]
  - MALLORY-WEISS SYNDROME [None]
  - MENISCUS LESION [None]
  - METABOLIC ENCEPHALOPATHY [None]
  - MYOSITIS [None]
  - NAUSEA [None]
  - OBLITERATIVE BRONCHIOLITIS [None]
  - OBSTRUCTIVE AIRWAYS DISORDER [None]
  - OEDEMA [None]
  - OESOPHAGITIS [None]
  - PERICARDIAL EFFUSION [None]
  - PERICARDITIS [None]
  - PLEURAL EFFUSION [None]
  - PNEUMONIA HERPES VIRAL [None]
  - PNEUMOTHORAX [None]
  - POLYCYTHAEMIA VERA [None]
  - PULMONARY ALVEOLAR HAEMORRHAGE [None]
  - PULMONARY HAEMATOMA [None]
  - PULMONARY OEDEMA [None]
  - PULMONARY VASCULITIS [None]
  - PYELONEPHRITIS [None]
  - RENAL FAILURE [None]
  - STOMATITIS [None]
  - SYNCOPE [None]
  - THROMBOPHLEBITIS [None]
  - URINARY TRACT INFECTION [None]
  - VESICOURETERIC REFLUX [None]
  - VOMITING [None]
  - WOUND INFECTION [None]
